FAERS Safety Report 12791563 (Version 1)
Quarter: 2016Q3

REPORT INFORMATION
  Report Type: Spontaneous
  Country: US (occurrence: US)
  Receive Date: 20160929
  Receipt Date: 20160929
  Transmission Date: 20161109
  Serious: No
  Sender: FDA-Public Use
  Company Number: US-ASTRAZENECA-2016SE76723

PATIENT
  Age: 32785 Day
  Sex: Female

DRUGS (4)
  1. FASLODEX [Suspect]
     Active Substance: FULVESTRANT
     Dosage: 250.0MG UNKNOWN
     Route: 030
     Dates: start: 201509
  2. IBRANCE [Suspect]
     Active Substance: PALBOCICLIB
     Dosage: 75.0MG UNKNOWN
     Route: 048
     Dates: start: 201509
  3. FASLODEX [Suspect]
     Active Substance: FULVESTRANT
     Dosage: UNKNOWN
     Route: 030
     Dates: start: 20160629
  4. IBRANCE [Suspect]
     Active Substance: PALBOCICLIB
     Dosage: 75.0MG UNKNOWN
     Route: 048
     Dates: start: 201510

REACTIONS (3)
  - Decreased appetite [Unknown]
  - Weight decreased [Unknown]
  - Diarrhoea [Unknown]

NARRATIVE: CASE EVENT DATE: 20160629
